FAERS Safety Report 5095644-0 (Version None)
Quarter: 2006Q3

REPORT INFORMATION
  Report Type: 
  Country: None (occurrence: None)
  Receive Date: 20060731
  Receipt Date: 20060425
  Transmission Date: 20061208
  Serious: No
  Sender: FDA-Public Use
  Company Number: 2006PV012705

PATIENT
  Age: 45 Year
  Sex: Male

DRUGS (3)
  1. BYETTA [Suspect]
     Indication: DIABETES MELLITUS NON-INSULIN-DEPENDENT
     Dosage: SC
     Route: 058
     Dates: end: 20060101
  2. DIABETES MEDICATION [Concomitant]
  3. NPH INSULIN [Concomitant]

REACTIONS (1)
  - BLOOD GLUCOSE INCREASED [None]
